FAERS Safety Report 8180043-5 (Version None)
Quarter: 2012Q1

REPORT INFORMATION
  Report Type: 
  Country: None (occurrence: None)
  Receive Date: 20120302
  Receipt Date: 20120224
  Transmission Date: 20120608
  Serious: Yes (Life-Threatening, Disabling, Other)
  Sender: FDA-Public Use
  Company Number: US-FRI-1000025860

PATIENT
  Age: 78 Year
  Sex: Male
  Weight: 83.9 kg

DRUGS (2)
  1. DALIRESP [Suspect]
     Indication: CHRONIC OBSTRUCTIVE PULMONARY DISEASE
     Dosage: 500 MCG
     Route: 048
     Dates: start: 20111114, end: 20111123
  2. ALPRAZOLAM [Concomitant]
     Indication: ANXIETY

REACTIONS (12)
  - SUICIDE ATTEMPT [None]
  - DEPRESSION [None]
  - DIZZINESS [None]
  - INFLUENZA LIKE ILLNESS [None]
  - INSOMNIA [None]
  - SUICIDAL IDEATION [None]
  - NAUSEA [None]
  - IMPULSIVE BEHAVIOUR [None]
  - ANXIETY [None]
  - MOOD ALTERED [None]
  - HEADACHE [None]
  - DECREASED APPETITE [None]
